FAERS Safety Report 10232613 (Version 3)
Quarter: 2014Q3

REPORT INFORMATION
  Report Type: Spontaneous
  Country: SE (occurrence: SE)
  Receive Date: 20140612
  Receipt Date: 20140909
  Transmission Date: 20150326
  Serious: Yes (Hospitalization, Other)
  Sender: FDA-Public Use
  Company Number: SE-AMGEN-SWESP2014042489

PATIENT
  Age: 70 Year
  Sex: Male

DRUGS (9)
  1. TROMBYL [Concomitant]
     Active Substance: ASPIRIN
     Dosage: 75 MG, QD
  2. OMEPRAZOL                          /00661201/ [Concomitant]
     Active Substance: OMEPRAZOLE
     Dosage: 20 MG, QD
  3. SIMVASTATIN. [Concomitant]
     Active Substance: SIMVASTATIN
     Dosage: 20 MG, QD
  4. SUPREFACT [Concomitant]
     Active Substance: BUSERELIN
  5. CILAXORAL [Concomitant]
  6. PROLIA [Suspect]
     Active Substance: DENOSUMAB
     Indication: PRODUCT USED FOR UNKNOWN INDICATION
     Dosage: UNK
     Route: 065
     Dates: start: 2011
  7. PREDNISOLON                        /00016201/ [Concomitant]
     Active Substance: PREDNISOLONE
     Dosage: 10 MG, QD
  8. ALVEDON [Concomitant]
     Active Substance: ACETAMINOPHEN
  9. IMOVAN [Concomitant]

REACTIONS (4)
  - Hypophosphataemia [Unknown]
  - Hypocalcaemia [Unknown]
  - Metastases to bone [Unknown]
  - Blood creatinine increased [Unknown]
